FAERS Safety Report 9774473 (Version 2)
Quarter: 2014Q1

REPORT INFORMATION
  Report Type: Spontaneous
  Country: GB (occurrence: GB)
  Receive Date: 20131220
  Receipt Date: 20140106
  Transmission Date: 20141002
  Serious: Yes (Other)
  Sender: FDA-Public Use
  Company Number: GB-ROCHE-1322275

PATIENT
  Sex: Female

DRUGS (15)
  1. RITUXIMAB [Suspect]
     Indication: NON-HODGKIN^S LYMPHOMA
     Dosage: TOTAL OF 3 CYCLES
     Route: 042
     Dates: start: 20130610
  2. RITUXIMAB [Suspect]
     Route: 042
     Dates: start: 20130701
  3. RITUXIMAB [Suspect]
     Route: 042
     Dates: start: 20130722
  4. CYCLOPHOSPHAMIDE [Suspect]
     Indication: NON-HODGKIN^S LYMPHOMA
     Dosage: TOTAL OF 3 CYCLES
     Route: 042
     Dates: start: 20130610
  5. CYCLOPHOSPHAMIDE [Suspect]
     Route: 042
     Dates: start: 20130701
  6. CYCLOPHOSPHAMIDE [Suspect]
     Route: 042
     Dates: start: 20130722
  7. DOXORUBICIN [Suspect]
     Indication: NON-HODGKIN^S LYMPHOMA
     Dosage: TOTAL OF 3 CYCLES
     Route: 042
     Dates: start: 20130610
  8. DOXORUBICIN [Suspect]
     Route: 042
     Dates: start: 20130701
  9. DOXORUBICIN [Suspect]
     Route: 042
     Dates: start: 20130722
  10. VINCRISTINE [Suspect]
     Indication: NON-HODGKIN^S LYMPHOMA
     Dosage: TOTAL OF 3 CYCLES
     Route: 042
     Dates: start: 20130610
  11. VINCRISTINE [Suspect]
     Route: 042
     Dates: start: 20130701
  12. VINCRISTINE [Suspect]
     Route: 042
     Dates: start: 20130722
  13. PREDNISOLONE [Suspect]
     Indication: NON-HODGKIN^S LYMPHOMA
     Dosage: TOTAL OF 3 CYCLES
     Route: 048
     Dates: start: 20130610
  14. PREDNISOLONE [Suspect]
     Route: 048
     Dates: start: 20130701
  15. PREDNISOLONE [Suspect]
     Route: 048
     Dates: start: 20130722

REACTIONS (1)
  - Progressive multifocal leukoencephalopathy [Unknown]
